FAERS Safety Report 20102725 (Version 1)
Quarter: 2021Q4

REPORT INFORMATION
  Report Type: Spontaneous
  Country: US (occurrence: None)
  Receive Date: 20211122
  Receipt Date: 20211122
  Transmission Date: 20220303
  Serious: No
  Sender: FDA-Public Use
  Company Number: None

PATIENT
  Age: 16 Year

DRUGS (1)
  1. HYOSCYAMINE SULFATE [Suspect]
     Active Substance: HYOSCYAMINE SULFATE

REACTIONS (9)
  - Mental status changes [None]
  - Nausea [None]
  - Vomiting [None]
  - Fall [None]
  - Face injury [None]
  - Subarachnoid haemorrhage [None]
  - Confusional state [None]
  - Tachycardia [None]
  - Mucosal dryness [None]
